FAERS Safety Report 10595149 (Version 1)
Quarter: 2014Q4

REPORT INFORMATION
  Report Type: Spontaneous
  Country: US (occurrence: None)
  Receive Date: 20141119
  Receipt Date: 20141119
  Transmission Date: 20150529
  Serious: Yes (Hospitalization)
  Sender: FDA-Public Use
  Company Number: None

PATIENT
  Age: 62 Year
  Sex: Male
  Weight: 86.64 kg

DRUGS (2)
  1. DIVALPROEX [Suspect]
     Active Substance: DIVALPROEX SODIUM
     Indication: SEIZURE
     Dosage: AT BED TIME
     Route: 048
     Dates: start: 20011120, end: 20140701
  2. DIVALPROEX [Suspect]
     Active Substance: DIVALPROEX SODIUM
     Indication: SCHIZOPHRENIA, PARANOID TYPE
     Dosage: AT BED TIME
     Route: 048
     Dates: start: 20011120, end: 20140701

REACTIONS (2)
  - Hyperammonaemia [None]
  - Confusional state [None]

NARRATIVE: CASE EVENT DATE: 20140701
